FAERS Safety Report 21357627 (Version 1)
Quarter: 2022Q3

REPORT INFORMATION
  Report Type: Spontaneous
  Country: US (occurrence: US)
  Receive Date: 20220921
  Receipt Date: 20220921
  Transmission Date: 20221027
  Serious: No
  Sender: FDA-Public Use
  Company Number: US-JNJFOC-20220930010

PATIENT

DRUGS (1)
  1. TYLENOL [Suspect]
     Active Substance: ACETAMINOPHEN
     Indication: Pain
     Dosage: TOOK LIKE 13 PILLS
     Route: 065

REACTIONS (3)
  - Pain [Not Recovered/Not Resolved]
  - Vomiting [Unknown]
  - Overdose [Unknown]
